FAERS Safety Report 5446176-9 (Version None)
Quarter: 2007Q3

REPORT INFORMATION
  Report Type: 
  Country: None (occurrence: None)
  Receive Date: 20070731
  Receipt Date: 20061012
  Transmission Date: 20080115
  Serious: Yes (Other)
  Sender: FDA-Public Use
  Company Number: US-2006-029082

PATIENT
  Age: 56 Year
  Sex: Male
  Weight: 84 kg

DRUGS (9)
  1. MAGNEVIST INJECTION(GADOPENTETATE DIMEGLUMINE) INJECTION [Suspect]
     Indication: NUCLEAR MAGNETIC RESONANCE IMAGING
     Dosage: 19 ML, 1 DOSE, INTRAVENOUS
     Route: 042
     Dates: start: 20060928, end: 20060928
  2. EFFEXOR XR [Concomitant]
  3. TOPROL-XL [Concomitant]
  4. ASPIRIN [Concomitant]
  5. AMBIEN [Concomitant]
  6. HYDROCODONE W/APAP (HYDROCODONE) [Concomitant]
  7. PLAVIX [Concomitant]
  8. ZOCOR [Concomitant]
  9. ALTACE [Concomitant]

REACTIONS (6)
  - DYSPNOEA [None]
  - HEART RATE DECREASED [None]
  - NASAL CONGESTION [None]
  - PALPITATIONS [None]
  - RASH ERYTHEMATOUS [None]
  - SNEEZING [None]
